FAERS Safety Report 19269526 (Version 2)
Quarter: 2022Q4

REPORT INFORMATION
  Report Type: Report from Study
  Country: US (occurrence: US)
  Receive Date: 20210518
  Receipt Date: 20221107
  Transmission Date: 20230112
  Serious: Yes (Life-Threatening, Hospitalization)
  Sender: FDA-Public Use
  Company Number: US-GLAXOSMITHKLINE-US2021GSK075124

PATIENT

DRUGS (13)
  1. NIRAPARIB [Suspect]
     Active Substance: NIRAPARIB
     Indication: Ovarian cancer
     Dosage: UNK
     Route: 048
  2. NIRAPARIB [Suspect]
     Active Substance: NIRAPARIB
     Dosage: 300 MG
     Route: 048
     Dates: start: 20210402
  3. PLACEBO [Suspect]
     Active Substance: UNSPECIFIED INGREDIENT
     Indication: Ovarian cancer
     Dosage: 500 MG
     Route: 042
     Dates: start: 20200911, end: 20200911
  4. PLACEBO [Suspect]
     Active Substance: UNSPECIFIED INGREDIENT
     Dosage: 1000 MG
     Route: 042
     Dates: start: 20210226, end: 20210226
  5. CARBOPLATIN [Suspect]
     Active Substance: CARBOPLATIN
     Indication: Ovarian cancer
     Dosage: 6 AUC
     Route: 042
     Dates: start: 20200821, end: 20200821
  6. CARBOPLATIN [Suspect]
     Active Substance: CARBOPLATIN
     Dosage: 5 AUC
     Route: 042
     Dates: start: 20210122, end: 20210122
  7. PACLITAXEL [Suspect]
     Active Substance: PACLITAXEL
     Indication: Ovarian cancer
     Dosage: 369 MG
     Route: 042
     Dates: start: 20200821, end: 20200821
  8. PACLITAXEL [Suspect]
     Active Substance: PACLITAXEL
     Dosage: 265 MG
     Route: 042
     Dates: start: 20210122, end: 20210122
  9. BEVACIZUMAB [Suspect]
     Active Substance: BEVACIZUMAB
     Indication: Ovarian cancer
     Route: 042
  10. CISPLATIN [Concomitant]
     Active Substance: CISPLATIN
     Indication: Ovarian cancer
     Route: 042
  11. DOCETAXEL [Concomitant]
     Active Substance: DOCETAXEL
     Indication: Ovarian cancer
     Route: 042
  12. LISINOPRIL [Concomitant]
     Active Substance: LISINOPRIL
     Indication: Product used for unknown indication
  13. HYDROCHLOROTHIAZIDE [Concomitant]
     Active Substance: HYDROCHLOROTHIAZIDE
     Indication: Product used for unknown indication

REACTIONS (2)
  - Platelet count decreased [Recovered/Resolved]
  - Platelet count decreased [Recovered/Resolved]

NARRATIVE: CASE EVENT DATE: 20210402
